FAERS Safety Report 6963166-5 (Version None)
Quarter: 2010Q3

REPORT INFORMATION
  Report Type: 
  Country: None (occurrence: None)
  Receive Date: 20100831
  Receipt Date: 20100816
  Transmission Date: 20110219
  Serious: Yes (Hospitalization)
  Sender: FDA-Public Use
  Company Number: 2009SP028413

PATIENT
  Age: 23 Year
  Sex: Female
  Weight: 58.9676 kg

DRUGS (5)
  1. NUVARING [Suspect]
     Indication: CONTRACEPTION
     Dates: start: 20070101, end: 20070901
  2. DILAUDID [Suspect]
     Indication: HEADACHE
  3. MORPHINE [Suspect]
     Indication: HEADACHE
  4. OXYCONTIN [Suspect]
     Indication: HEADACHE
  5. OXYCODONE HCL [Suspect]
     Indication: HEADACHE

REACTIONS (15)
  - ABORTION SPONTANEOUS [None]
  - ANTIPHOSPHOLIPID ANTIBODIES POSITIVE [None]
  - CONSTIPATION [None]
  - DIPLOPIA [None]
  - HAIR GROWTH ABNORMAL [None]
  - HUMAN PAPILLOMA VIRUS TEST POSITIVE [None]
  - INTRACRANIAL VENOUS SINUS THROMBOSIS [None]
  - NO THERAPEUTIC RESPONSE [None]
  - SMEAR CERVIX ABNORMAL [None]
  - SOMNOLENCE [None]
  - STRESS [None]
  - SUBARACHNOID HAEMORRHAGE [None]
  - THROMBOTIC STROKE [None]
  - UNINTENDED PREGNANCY [None]
  - VISUAL FIELD DEFECT [None]
